FAERS Safety Report 9655927 (Version 1)
Quarter: 2013Q4

REPORT INFORMATION
  Report Type: Spontaneous
  Country: US (occurrence: US)
  Receive Date: 20131030
  Receipt Date: 20131030
  Transmission Date: 20140711
  Serious: Yes (Hospitalization)
  Sender: FDA-Public Use
  Company Number: US-JNJFOC-20130904480

PATIENT
  Age: 8 Month
  Sex: Male
  Weight: 7.94 kg

DRUGS (4)
  1. CONCENTRATED MOTRIN INFANTS^ DROPS BERRY FLAVOR [Suspect]
     Route: 048
  2. CONCENTRATED MOTRIN INFANTS^ DROPS BERRY FLAVOR [Suspect]
     Indication: PYREXIA
     Route: 048
     Dates: start: 20130901, end: 20130902
  3. TYLENOL [Concomitant]
     Indication: PYREXIA
     Route: 065
  4. AMOXICILLIN [Concomitant]
     Indication: VIRAL INFECTION
     Dosage: 5 ML PER 8-10 HOURS, FOR 1 WEEK
     Route: 065

REACTIONS (2)
  - Adverse event [Recovering/Resolving]
  - Product quality issue [Unknown]
